FAERS Safety Report 5562688-1 (Version None)
Quarter: 2007Q4

REPORT INFORMATION
  Report Type: 
  Country: None (occurrence: None)
  Receive Date: 20071217
  Receipt Date: 20071205
  Transmission Date: 20080405
  Serious: Yes (Other)
  Sender: FDA-Public Use
  Company Number: FR-JNJFOC-20071003662

PATIENT
  Sex: Female
  Weight: 62 kg

DRUGS (8)
  1. TOPAMAX [Suspect]
     Indication: EPILEPSY
     Dosage: CAPSULES FORM UNTIL OCT-2007, THEN TABLETS (SAME DOSE)
     Route: 048
  2. EPITOMAX [Suspect]
     Indication: EPILEPSY
     Route: 048
  3. SEROPLEX [Concomitant]
     Indication: DRUG USE FOR UNKNOWN INDICATION
  4. LORAZEPAM [Concomitant]
     Indication: DRUG USE FOR UNKNOWN INDICATION
  5. TAHOR [Concomitant]
     Indication: HYPERCHOLESTEROLAEMIA
  6. LEVOTHYROX [Concomitant]
     Indication: DRUG USE FOR UNKNOWN INDICATION
  7. PROPRANOLOL [Concomitant]
     Indication: ARRHYTHMIA
  8. METFORMIN HCL [Concomitant]
     Indication: DIABETES MELLITUS

REACTIONS (7)
  - ABNORMAL SENSATION IN EYE [None]
  - CONJUNCTIVAL OEDEMA [None]
  - EYELID OEDEMA [None]
  - OCULAR HYPERAEMIA [None]
  - RETINAL EXUDATES [None]
  - VISUAL ACUITY REDUCED [None]
  - VISUAL DISTURBANCE [None]
